FAERS Safety Report 24084354 (Version 1)
Quarter: 2024Q3

REPORT INFORMATION
  Report Type: Other
  Country: RO (occurrence: RO)
  Receive Date: 20240712
  Receipt Date: 20240712
  Transmission Date: 20241017
  Serious: Yes (Other)
  Sender: EMD SERONO INC
  Company Number: RO-Merck Healthcare KGaA-2024036849

PATIENT
  Age: 66 Year
  Sex: Female

DRUGS (1)
  1. METFORMIN [Suspect]
     Active Substance: METFORMIN HYDROCHLORIDE
     Indication: Insulinoma

REACTIONS (4)
  - Loss of consciousness [Recovering/Resolving]
  - Hypoglycaemia [Recovering/Resolving]
  - Malaise [Recovering/Resolving]
  - Product prescribing error [Unknown]

NARRATIVE: CASE EVENT DATE: 20210101
